FAERS Safety Report 6779291-8 (Version None)
Quarter: 2010Q2

REPORT INFORMATION
  Report Type: 
  Country: None (occurrence: None)
  Receive Date: 20100618
  Receipt Date: 20100607
  Transmission Date: 20101027
  Serious: Yes (Death, Hospitalization)
  Sender: FDA-Public Use
  Company Number: DE-JNJFOC-20100505417

PATIENT
  Age: 61 Year
  Sex: Female

DRUGS (4)
  1. REMICADE [Suspect]
     Indication: RHEUMATOID ARTHRITIS
     Route: 042
  2. METHOTREXATE [Suspect]
     Indication: RHEUMATOID ARTHRITIS
  3. PREDNISOLONE [Concomitant]
  4. DICLOFENAC SODIUM [Concomitant]

REACTIONS (4)
  - HEPATOTOXICITY [None]
  - METASTATIC BRONCHIAL CARCINOMA [None]
  - RENAL FAILURE ACUTE [None]
  - SEPSIS [None]
